FAERS Safety Report 7963146-7 (Version None)
Quarter: 2011Q4

REPORT INFORMATION
  Report Type: 
  Country: None (occurrence: None)
  Receive Date: 20111207
  Receipt Date: 20070309
  Transmission Date: 20120403
  Serious: Yes (Other)
  Sender: FDA-Public Use
  Company Number: PHHY2007KR06751

PATIENT
  Sex: Male

DRUGS (1)
  1. GLEEVEC [Suspect]

REACTIONS (4)
  - GASTRIC CYST [None]
  - MELANODERMIA [None]
  - DECREASED APPETITE [None]
  - SKIN DISCOLOURATION [None]
